FAERS Safety Report 7604347-7 (Version None)
Quarter: 2011Q3

REPORT INFORMATION
  Report Type: 
  Country: None (occurrence: None)
  Receive Date: 20110712
  Receipt Date: 20110701
  Transmission Date: 20111222
  Serious: Yes (Other)
  Sender: FDA-Public Use
  Company Number: PHHY2011FR59181

PATIENT
  Sex: Male

DRUGS (14)
  1. ONBREZ [Suspect]
     Dosage: 10 CAPSULES
  2. DEPAKENE [Concomitant]
     Indication: EPILEPSY
     Dosage: 500 MG, BID
  3. OSTRAM [Concomitant]
     Dosage: 1 DF, QD
  4. ASPEGIC 325 [Concomitant]
     Dosage: 100 MG, UNK
  5. ONBREZ [Suspect]
     Indication: CHRONIC OBSTRUCTIVE PULMONARY DISEASE
     Dosage: 150 UG, UNK
  6. KEPPRA [Concomitant]
     Indication: EPILEPSY
     Dosage: 250 MG, BID
  7. LASIX [Concomitant]
     Dosage: 40 MG, QID
  8. ALFUZOSIN HCL [Concomitant]
     Dosage: 10 MG, QD
  9. KEPPRA [Concomitant]
     Dosage: 500 MG, BID
  10. DIPIPERON [Concomitant]
     Dosage: 15 DRP, QD
  11. OMEPRAZOLE [Concomitant]
     Dosage: 1 DF, QD
  12. CLONAZEPAM [Concomitant]
     Dosage: 8 DRP, QD
  13. DEBRIDAT [Concomitant]
     Indication: CONSTIPATION
     Dosage: 2 DF, TID
  14. DUPHALAC [Concomitant]
     Indication: CONSTIPATION
     Dosage: 4 DF, QD

REACTIONS (1)
  - OVERDOSE [None]
